FAERS Safety Report 4437819-7 (Version None)
Quarter: 2004Q3

REPORT INFORMATION
  Report Type: 
  Country: None (occurrence: None)
  Receive Date: 20040728
  Receipt Date: 20040305
  Transmission Date: 20050211
  Serious: No
  Sender: FDA-Public Use
  Company Number: USA040361140

PATIENT
  Age: 11 Year
  Sex: Female
  Weight: 40 kg

DRUGS (1)
  1. STRATTERA [Suspect]
     Indication: DISTURBANCE IN ATTENTION
     Dates: start: 20030401

REACTIONS (7)
  - BLISTER [None]
  - FEELING HOT [None]
  - PHOTOSENSITIVITY REACTION [None]
  - RASH MACULAR [None]
  - SCAB [None]
  - SWELLING FACE [None]
  - WOUND SECRETION [None]
